FAERS Safety Report 9817643 (Version 2)
Quarter: 2014Q2

REPORT INFORMATION
  Report Type: Spontaneous
  Country: US (occurrence: None)
  Receive Date: 20131127
  Receipt Date: 20131127
  Transmission Date: 20141212
  Serious: No
  Sender: FDA-Public Use
  Company Number: 218891

PATIENT
  Sex: Male

DRUGS (1)
  1. PICATO [Suspect]
     Indication: SOLAR LENTIGO
     Dosage: TOPICAL
     Route: 061
     Dates: start: 20120908, end: 20120910

REACTIONS (10)
  - Burning sensation [None]
  - Erythema [None]
  - Skin exfoliation [None]
  - Off label use [None]
  - Off label use [None]
  - Application site pain [None]
  - Application site pain [None]
  - Application site erythema [None]
  - Application site exfoliation [None]
  - Drug administration error [None]
